FAERS Safety Report 10418432 (Version 1)
Quarter: 2014Q3

REPORT INFORMATION
  Report Type: Spontaneous
  Country: GB (occurrence: GB)
  Receive Date: 20140829
  Receipt Date: 20140829
  Transmission Date: 20150326
  Serious: Yes (Other)
  Sender: FDA-Public Use
  Company Number: GB-TEVA-504067ISR

PATIENT
  Age: 76 Year
  Sex: Male
  Weight: 74.5 kg

DRUGS (5)
  1. PRAVASTATIN [Suspect]
     Active Substance: PRAVASTATIN\PRAVASTATIN SODIUM
     Route: 048
     Dates: start: 20140416
  2. ALFUZOSIN [Concomitant]
     Active Substance: ALFUZOSIN
     Dates: start: 20140502, end: 20140627
  3. DIPYRIDAMOLE. [Concomitant]
     Active Substance: DIPYRIDAMOLE
     Dates: start: 20140605
  4. FINASTERIDE. [Concomitant]
     Active Substance: FINASTERIDE
     Dates: start: 20140502, end: 20140627
  5. ASPIRIN. [Concomitant]
     Active Substance: ASPIRIN
     Dates: start: 20140623

REACTIONS (3)
  - Nightmare [Recovered/Resolved]
  - Injury [Recovered/Resolved]
  - Fall [Recovered/Resolved]

NARRATIVE: CASE EVENT DATE: 20140812
